FAERS Safety Report 7320640-X (Version None)
Quarter: 2011Q1

REPORT INFORMATION
  Report Type: 
  Country: None (occurrence: None)
  Receive Date: 20110228
  Receipt Date: 20110223
  Transmission Date: 20110831
  Serious: Yes (Hospitalization)
  Sender: FDA-Public Use
  Company Number: GB-ROCHE-684510

PATIENT
  Sex: Female
  Weight: 85.2 kg

DRUGS (7)
  1. FLIXOTIDE [Concomitant]
  2. RIBAVIRIN [Suspect]
     Dosage: LAST DOSE PRIOR TO SAE: 05 FEB 2010, THERAPY TEMPORARILY INTERRUPTED.FREQUENCY: DAILY
     Route: 048
     Dates: start: 20091124, end: 20100205
  3. VENTOLIN [Concomitant]
  4. PEGINTERFERON ALFA-2A [Suspect]
     Dosage: FORM: INJECTION, LAST DOSE PRIOR TO SAE: 26 JAN 2010
     Route: 042
     Dates: start: 20091124
  5. RIBAVIRIN [Suspect]
     Dosage: FREQUENCY: DAILY
     Route: 048
     Dates: start: 20100209
  6. BECOTIDE [Concomitant]
  7. RO 5024048 (POLYMERASE INHIBITOR) [Suspect]
     Dosage: LAST DOSE PRIOR TO SAE: 05 FEB 2010, THERAPY PERMANENTLY DISCONTINUED, DOSE BLINDED.
     Route: 048
     Dates: start: 20091124, end: 20100205

REACTIONS (1)
  - CELLULITIS [None]
